FAERS Safety Report 18767781 (Version 1)
Quarter: 2021Q1

REPORT INFORMATION
  Report Type: Spontaneous
  Country: US (occurrence: US)
  Receive Date: 20210120
  Receipt Date: 20210120
  Transmission Date: 20210419
  Serious: Yes (Hospitalization)
  Sender: FDA-Public Use
  Company Number: None

PATIENT
  Age: 90 Year
  Sex: Male
  Weight: 67 kg

DRUGS (1)
  1. ALOGLIPTIN (ALOGLIPTIN 6.25MG TAB) [Suspect]
     Active Substance: ALOGLIPTIN
     Indication: DIABETES MELLITUS
     Route: 048
     Dates: start: 20191115, end: 20201027

REACTIONS (2)
  - Pancreatitis [None]
  - Cholelithiasis [None]

NARRATIVE: CASE EVENT DATE: 20201027
